FAERS Safety Report 25499539 (Version 2)
Quarter: 2025Q3

REPORT INFORMATION
  Report Type: Spontaneous
  Country: US (occurrence: US)
  Receive Date: 20250701
  Receipt Date: 20250717
  Transmission Date: 20251020
  Serious: Yes (Other)
  Sender: VERTEX
  Company Number: US-VERTEX PHARMACEUTICALS-2025-010745

PATIENT
  Age: 3 Year
  Sex: Female

DRUGS (9)
  1. TRIKAFTA [Suspect]
     Active Substance: ELEXACAFTOR\IVACAFTOR\TEZACAFTOR
     Indication: Cystic fibrosis
     Dosage: BLUE PACKET IN THE MORNING AND GREEN PACKET IN THE EVENING
     Route: 048
     Dates: start: 202401
  2. ALBUTEROL [Concomitant]
     Active Substance: ALBUTEROL
  3. AZITHROMYCIN [Concomitant]
     Active Substance: AZITHROMYCIN
  4. VITAMIN D3 [Concomitant]
     Active Substance: CHOLECALCIFEROL
     Route: 042
  5. CYPROHEPTADINE [Concomitant]
     Active Substance: CYPROHEPTADINE
     Dosage: BID
  6. PULMOZYME [Concomitant]
     Active Substance: DORNASE ALFA
  7. ZENPEP [Concomitant]
     Active Substance: PANCRELIPASE AMYLASE\PANCRELIPASE LIPASE\PANCRELIPASE PROTEASE
  8. SODIUM CHLORIDE [Concomitant]
     Active Substance: SODIUM CHLORIDE
  9. TOBI [Concomitant]
     Active Substance: TOBRAMYCIN
     Dosage: UNK UNK, BID

REACTIONS (1)
  - Hordeolum [Recovered/Resolved]

NARRATIVE: CASE EVENT DATE: 20240801
